FAERS Safety Report 8933838 (Version 1)
Quarter: 2012Q4

REPORT INFORMATION
  Report Type: Report from Study
  Country: US (occurrence: US)
  Receive Date: 20121129
  Receipt Date: 20121129
  Transmission Date: 20130627
  Serious: Yes (Hospitalization)
  Sender: FDA-Public Use
  Company Number: US-NAPPMUNDI-USA-2012-0094070

PATIENT
  Age: 66 Year
  Sex: Female

DRUGS (2)
  1. OXYCONTIN (NDA 22-272) [Suspect]
     Dosage: 40 mg, q12h
  2. OXYCONTIN (NDA 22-272) [Suspect]
     Indication: PRODUCT USED FOR UNKNOWN INDICATION
     Dosage: 80 mg, tid
     Route: 048

REACTIONS (4)
  - Hospitalisation [Unknown]
  - Activities of daily living impaired [Unknown]
  - Pain [Unknown]
  - Insomnia [Unknown]
